FAERS Safety Report 12875553 (Version 1)
Quarter: 2016Q4

REPORT INFORMATION
  Report Type: Spontaneous
  Country: DE (occurrence: DE)
  Receive Date: 20161024
  Receipt Date: 20161024
  Transmission Date: 20170207
  Serious: Yes (Other)
  Sender: FDA-Public Use
  Company Number: DE-ACCORD-044998

PATIENT
  Age: 87 Year
  Sex: Female

DRUGS (8)
  1. RAMIPRIL. [Concomitant]
     Active Substance: RAMIPRIL
     Dosage: RAMIPRIL 5 MG (1-0-0)
  2. TORASEMIDE [Concomitant]
     Active Substance: TORSEMIDE
     Dosage: TORASEMIDE 5 MG (1-0-0)
  3. QUINIDINE [Interacting]
     Active Substance: QUINIDINE
     Indication: MUSCLE SPASMS
  4. COLECALCIFEROL [Concomitant]
     Active Substance: CHOLECALCIFEROL
     Dosage: VITAMIN D3 1000 IU (1-0-0)
  5. SIMVASTATIN. [Suspect]
     Active Substance: SIMVASTATIN
     Indication: PRODUCT USED FOR UNKNOWN INDICATION
     Dosage: SIMVASTATIN 40 MG (0-0-1)
  6. BISOPROLOL [Concomitant]
     Active Substance: BISOPROLOL
     Dosage: BISOPROLOL 2.5 MG (1-0-0)
  7. FENTANYL. [Concomitant]
     Active Substance: FENTANYL
     Dosage: FENTANYL PATCH 12.5 MICROG ONCE EVERY 3 DAYS
  8. ACETYLSALICYLIC ACID [Concomitant]
     Active Substance: ASPIRIN
     Dosage: ASPIRIN 100 MG (1-0-0)

REACTIONS (3)
  - Toxicity to various agents [Unknown]
  - Drug interaction [Unknown]
  - Myopathy [Recovered/Resolved]
